FAERS Safety Report 5317513-0 (Version None)
Quarter: 2007Q2

REPORT INFORMATION
  Report Type: 
  Country: None (occurrence: None)
  Receive Date: 20070507
  Receipt Date: 20070427
  Transmission Date: 20071010
  Serious: Yes (Hospitalization)
  Sender: FDA-Public Use
  Company Number: PHEH2007US04645

PATIENT
  Age: 52 Year

DRUGS (1)
  1. ZELNORM [Suspect]

REACTIONS (2)
  - HEART RATE DECREASED [None]
  - LOSS OF CONSCIOUSNESS [None]
